FAERS Safety Report 9455704 (Version 1)
Quarter: 2013Q3

REPORT INFORMATION
  Report Type: Spontaneous
  Country: FR (occurrence: FR)
  Receive Date: 20130813
  Receipt Date: 20130813
  Transmission Date: 20140515
  Serious: Yes (Hospitalization)
  Sender: FDA-Public Use
  Company Number: FR-ASTRAZENECA-2013SE48547

PATIENT
  Age: 17605 Day
  Sex: Male

DRUGS (18)
  1. INEXIUM [Suspect]
     Route: 048
     Dates: start: 20120707, end: 20120713
  2. VERSATIS [Suspect]
     Dosage: 5%
     Route: 062
     Dates: start: 20120726, end: 20120727
  3. SKENAN [Suspect]
     Route: 048
     Dates: start: 20120713, end: 20120727
  4. SKENAN [Suspect]
     Dosage: ACTISKENAN; 10 MG SIX TIMES A DAY
     Route: 048
     Dates: start: 20120713, end: 20130727
  5. PARACETAMOL [Suspect]
     Route: 048
     Dates: start: 20120628, end: 20120713
  6. MIOREL [Suspect]
     Route: 048
     Dates: start: 20120628, end: 20120728
  7. TRAMADOL [Suspect]
     Route: 048
     Dates: start: 20120711, end: 20120713
  8. VOLTAREN SR [Suspect]
     Route: 048
     Dates: start: 20120626, end: 20120713
  9. AUGMENTIN [Suspect]
     Route: 048
     Dates: start: 20120607, end: 20120713
  10. NEURONTIN [Suspect]
     Route: 048
     Dates: start: 20120721, end: 20120727
  11. AERIUS [Suspect]
     Route: 048
     Dates: start: 20120721, end: 20120727
  12. DOMPERIDONE [Suspect]
     Route: 048
     Dates: start: 20120726, end: 20120727
  13. KETAMINE [Suspect]
     Route: 048
     Dates: start: 20120723, end: 20120727
  14. SOLUPRED [Suspect]
     Route: 048
     Dates: start: 20120707, end: 20120713
  15. LOVENOX [Suspect]
     Dosage: 4000 IU ANTI-XA/0.4 ML PER DOSE, 1 DF PER DAY
     Route: 058
     Dates: start: 20120713
  16. LAROXYL [Suspect]
     Route: 048
     Dates: start: 20120719, end: 20120727
  17. LYRICA [Suspect]
     Route: 048
     Dates: start: 20120718, end: 20120719
  18. MYOLASTAN [Concomitant]

REACTIONS (5)
  - Sciatica [Recovered/Resolved]
  - Hepatocellular injury [Recovered/Resolved]
  - Hypertriglyceridaemia [Recovered/Resolved]
  - Hepatic steatosis [Recovered/Resolved]
  - Rash pruritic [Recovered/Resolved]
